FAERS Safety Report 8774677 (Version 2)
Quarter: 2012Q4

REPORT INFORMATION
  Report Type: 
  Country: US (occurrence: US)
  Receive Date: 20120910
  Receipt Date: 20120910
  Transmission Date: 20130627
  Serious: Yes (Hospitalization, Disabling, Other)
  Sender: FDA-Public Use
  Company Number: US-BAYER-2012-078229

PATIENT
  Age: 79 Year
  Sex: Male
  Weight: 84.73 kg

DRUGS (12)
  1. XARELTO [Suspect]
     Indication: CEREBROVASCULAR ACCIDENT PROPHYLAXIS
     Dosage: 20 mg, QD
     Route: 048
     Dates: start: 20120502, end: 20120723
  2. XARELTO [Interacting]
     Indication: ATRIAL FIBRILLATION
  3. ACETYLSALICYLIC ACID({=100 MG) [Interacting]
     Indication: ANTIPLATELET THERAPY
  4. AMIODARONE [Concomitant]
  5. CARVEDILOL [Concomitant]
  6. DOXAZOSIN [Concomitant]
  7. FISH OIL [Concomitant]
  8. GLYBURIDE [Concomitant]
  9. LASIX [Concomitant]
  10. LEVOTHYROXINE [Concomitant]
  11. LISINOPRIL [Concomitant]
  12. PRAVASTATIN [Concomitant]

REACTIONS (7)
  - Haemorrhage intracranial [Recovering/Resolving]
  - Intraventricular haemorrhage [None]
  - Hypertension [None]
  - Oxygen saturation decreased [None]
  - Haemoglobin decreased [None]
  - Haematocrit decreased [None]
  - International normalised ratio increased [None]
